FAERS Safety Report 4977572-1 (Version None)
Quarter: 2006Q2

REPORT INFORMATION
  Report Type: 
  Country: None (occurrence: None)
  Receive Date: 20060420
  Receipt Date: 20060320
  Transmission Date: 20061013
  Serious: Yes (Hospitalization, Other)
  Sender: FDA-Public Use
  Company Number: PHEH2006US03678

PATIENT
  Age: 72 Year
  Sex: Male
  Weight: 68.027 kg

DRUGS (4)
  1. ZOMETA [Suspect]
     Indication: PROSTATE CANCER
     Dates: start: 20060110
  2. WELLBUTRIN [Concomitant]
     Dosage: 200 MG, EVERY AM
  3. ADVAIR DISKUS 100/50 [Concomitant]
     Dosage: 250/50 MG, ONE PUFF TWICE DAILY
  4. INFLUENZA VACCINE [Concomitant]

REACTIONS (17)
  - AUTOIMMUNE DISORDER [None]
  - COLITIS ULCERATIVE [None]
  - DEHYDRATION [None]
  - ENTEROCOLITIS HAEMORRHAGIC [None]
  - FAILURE TO THRIVE [None]
  - HAEMORRHAGE [None]
  - HYPONATRAEMIA [None]
  - HYPOTENSION [None]
  - INFECTION [None]
  - LEUKOCYTOSIS [None]
  - MALNUTRITION [None]
  - METABOLIC ACIDOSIS [None]
  - OCCULT BLOOD POSITIVE [None]
  - THROMBOPHLEBITIS SUPERFICIAL [None]
  - THROMBOSIS [None]
  - TRANSIENT ISCHAEMIC ATTACK [None]
  - WEIGHT DECREASED [None]
